FAERS Safety Report 19077435 (Version 1)
Quarter: 2021Q1

REPORT INFORMATION
  Report Type: Spontaneous
  Country: US (occurrence: US)
  Receive Date: 20210331
  Receipt Date: 20210331
  Transmission Date: 20210420
  Serious: Yes (Other)
  Sender: FDA-Public Use
  Company Number: US-GLAXOSMITHKLINE-US2021GSK069851

PATIENT
  Sex: Female

DRUGS (7)
  1. RANITIDINE CAPSULE [Suspect]
     Active Substance: RANITIDINE
     Indication: INTRACRANIAL ANEURYSM
     Dosage: 150 MG, QD
     Route: 065
     Dates: start: 201004, end: 201710
  2. ZANTAC [Suspect]
     Active Substance: RANITIDINE HYDROCHLORIDE
     Indication: INTRACRANIAL ANEURYSM
     Dosage: 150 MG, QD
     Route: 065
     Dates: start: 201004, end: 201710
  3. ZANTAC [Suspect]
     Active Substance: RANITIDINE HYDROCHLORIDE
     Indication: INTRACRANIAL ANEURYSM
     Dosage: 150 MG, QD
     Route: 065
     Dates: start: 201004, end: 201710
  4. RANITIDINE. [Suspect]
     Active Substance: RANITIDINE
     Indication: INTRACRANIAL ANEURYSM
     Dosage: 150 MG, QD
     Route: 065
     Dates: start: 201004, end: 201710
  5. ZANTAC [Suspect]
     Active Substance: RANITIDINE HYDROCHLORIDE
     Indication: INTRACRANIAL ANEURYSM
     Dosage: 150 MG, QD
     Route: 065
     Dates: start: 201004, end: 201710
  6. RANITIDINE. [Suspect]
     Active Substance: RANITIDINE
     Indication: INTRACRANIAL ANEURYSM
     Dosage: 150 MG, QD
     Route: 065
     Dates: start: 201004, end: 201710
  7. RANITIDINE. [Suspect]
     Active Substance: RANITIDINE
     Indication: INTRACRANIAL ANEURYSM
     Dosage: 150 MG, QD
     Route: 065
     Dates: start: 201004, end: 201710

REACTIONS (1)
  - Breast cancer [Unknown]
